FAERS Safety Report 9160240 (Version 1)
Quarter: 2013Q1

REPORT INFORMATION
  Report Type: Spontaneous
  Country: US (occurrence: US)
  Receive Date: 20130313
  Receipt Date: 20130313
  Transmission Date: 20140127
  Serious: Yes (Other)
  Sender: FDA-Public Use
  Company Number: US-ELI_LILLY_AND_COMPANY-US201303000407

PATIENT
  Sex: Female

DRUGS (5)
  1. DULOXETINE HYDROCHLORIDE [Suspect]
     Indication: CERVICOBRACHIAL SYNDROME
     Dosage: 60 MG, UNKNOWN
     Dates: start: 2009
  2. DULOXETINE HYDROCHLORIDE [Suspect]
     Dosage: 30 MG, UNKNOWN
  3. TORADOL [Concomitant]
     Dosage: UNK, UNKNOWN
  4. IBUPROFEN [Concomitant]
     Dosage: UNK, UNKNOWN
  5. TYLENOL                                 /SCH/ [Concomitant]
     Dosage: UNK, UNKNOWN

REACTIONS (11)
  - Haematemesis [Unknown]
  - Diarrhoea haemorrhagic [Unknown]
  - Hepatic enzyme abnormal [Unknown]
  - Drug withdrawal syndrome [Recovered/Resolved]
  - Off label use [Unknown]
  - Nausea [Recovered/Resolved]
  - Diarrhoea [Recovered/Resolved]
  - Vomiting [Recovered/Resolved]
  - Migraine [Unknown]
  - Drug ineffective [Unknown]
  - Drug interaction [Unknown]
